FAERS Safety Report 4291250-6 (Version None)
Quarter: 2004Q1

REPORT INFORMATION
  Report Type: 
  Country: None (occurrence: None)
  Receive Date: 20040211
  Receipt Date: 20031120
  Transmission Date: 20041129
  Serious: No
  Sender: FDA-Public Use
  Company Number: US-GLAXOSMITHKLINE-A0440577A

PATIENT
  Age: 39 Year
  Sex: Female

DRUGS (1)
  1. PAROXETINE [Suspect]
     Indication: DEPRESSION
     Dosage: 20MG PER DAY
     Route: 048
     Dates: start: 20031113

REACTIONS (5)
  - DIZZINESS [None]
  - INSOMNIA [None]
  - NAUSEA [None]
  - SOMNOLENCE [None]
  - YAWNING [None]
